FAERS Safety Report 9607458 (Version 1)
Quarter: 2013Q4

REPORT INFORMATION
  Report Type: Spontaneous
  Country: FR (occurrence: FR)
  Receive Date: 20131009
  Receipt Date: 20131009
  Transmission Date: 20140711
  Serious: Yes (Death, Life-Threatening, Hospitalization)
  Sender: FDA-Public Use
  Company Number: FR-JNJFOC-20131002418

PATIENT
  Age: 79 Year
  Sex: Male

DRUGS (2)
  1. ZYTIGA [Suspect]
     Indication: PROSTATE CANCER
     Dosage: 250MG STRENGTH
     Route: 048
     Dates: start: 201306
  2. ENANTONE [Suspect]
     Indication: PROSTATE CANCER
     Route: 058
     Dates: start: 201307

REACTIONS (4)
  - Encephalopathy [Fatal]
  - Torsade de pointes [Fatal]
  - Metabolic alkalosis [Fatal]
  - Hypertension [Fatal]
